FAERS Safety Report 19824435 (Version 1)
Quarter: 2021Q3

REPORT INFORMATION
  Report Type: Spontaneous
  Country: US (occurrence: US)
  Receive Date: 20210913
  Receipt Date: 20210913
  Transmission Date: 20211014
  Serious: Yes (Other)
  Sender: FDA-Public Use
  Company Number: US-BEXIMCO-2021BEX00046

PATIENT
  Age: 86 Year
  Sex: Female

DRUGS (2)
  1. CARVEDILOL. [Suspect]
     Active Substance: CARVEDILOL
     Indication: STRESS CARDIOMYOPATHY
     Route: 065
  2. LISINOPRIL. [Suspect]
     Active Substance: LISINOPRIL
     Indication: STRESS CARDIOMYOPATHY
     Route: 065

REACTIONS (1)
  - Cardiogenic shock [Recovered/Resolved]
